FAERS Safety Report 9629347 (Version 1)
Quarter: 2013Q4

REPORT INFORMATION
  Report Type: Spontaneous
  Country: US (occurrence: US)
  Receive Date: 20131017
  Receipt Date: 20131017
  Transmission Date: 20140711
  Serious: No
  Sender: FDA-Public Use
  Company Number: US-TEVA-438673USA

PATIENT
  Age: 75 Year
  Sex: 0

DRUGS (1)
  1. PROAIR HFA [Suspect]
     Indication: INFLUENZA

REACTIONS (3)
  - Wheezing [Not Recovered/Not Resolved]
  - Drug ineffective for unapproved indication [Not Recovered/Not Resolved]
  - Off label use [Not Recovered/Not Resolved]
